FAERS Safety Report 6150868-6 (Version None)
Quarter: 2009Q2

REPORT INFORMATION
  Report Type: 
  Country: None (occurrence: None)
  Receive Date: 20090409
  Receipt Date: 20090401
  Transmission Date: 20091009
  Serious: Yes (Hospitalization, Other)
  Sender: FDA-Public Use
  Company Number: GB-GILEAD-2009-0021341

PATIENT
  Sex: Male

DRUGS (4)
  1. ATRIPLA [Suspect]
     Indication: DRUG USE FOR UNKNOWN INDICATION
     Dates: start: 20081101
  2. EMTRIVA [Concomitant]
     Dates: start: 20080501, end: 20081101
  3. EFAVIRENZ [Concomitant]
     Dates: start: 20080501, end: 20081101
  4. LAMIVUDINE [Concomitant]
     Dates: start: 20080501, end: 20081101

REACTIONS (4)
  - ALANINE AMINOTRANSFERASE INCREASED [None]
  - ASCITES [None]
  - LIVER TRANSPLANT [None]
  - OEDEMA PERIPHERAL [None]
